FAERS Safety Report 17266471 (Version 1)
Quarter: 2019Q4

REPORT INFORMATION
  Report Type: Spontaneous
  Country: US (occurrence: US)
  Receive Date: 20191219
  Receipt Date: 20191219
  Transmission Date: 20200122
  Serious: No
  Sender: FDA-Public Use
  Company Number: None

PATIENT
  Age: 53 Year
  Sex: Female

DRUGS (1)
  1. AZITHROMYCIN TAB 250MG*6-PK [Suspect]
     Active Substance: AZITHROMYCIN
     Route: 048
     Dates: start: 201809

REACTIONS (1)
  - Dizziness [None]

NARRATIVE: CASE EVENT DATE: 20191205
